FAERS Safety Report 9230310 (Version 1)
Quarter: 2013Q1

REPORT INFORMATION
  Report Type: Spontaneous
  Country: US (occurrence: None)
  Receive Date: 20121031
  Receipt Date: 20121031
  Transmission Date: 20140127
  Serious: No
  Sender: FDA-Public Use
  Company Number: PHEH2012US011400

PATIENT
  Age: 61 Year
  Sex: Female

DRUGS (2)
  1. GILENYA (FTY)CAPSULE, 0.5MG [Suspect]
     Indication: MULTIPLE SCLEROSIS
     Route: 048
     Dates: start: 20120201
  2. FAMRPIDINE (FAMPRIDINE) [Concomitant]

REACTIONS (6)
  - Balance disorder [None]
  - Gait disturbance [None]
  - Hypoaesthesia [None]
  - Asthenia [None]
  - Back pain [None]
  - Productive cough [None]
